FAERS Safety Report 16391221 (Version 4)
Quarter: 2019Q3

REPORT INFORMATION
  Report Type: Report from Study
  Country: US (occurrence: US)
  Receive Date: 20190604
  Receipt Date: 20190924
  Transmission Date: 20191004
  Serious: Yes (Hospitalization)
  Sender: FDA-Public Use
  Company Number: US-EXELIXIS-XL18419021486

PATIENT
  Age: 76 Year
  Sex: Female
  Weight: 64.4 kg

DRUGS (6)
  1. XL184 [Suspect]
     Active Substance: CABOZANTINIB
     Dosage: 40 MG, QD
     Route: 048
     Dates: start: 20190628
  2. ATEZOLIZUMAB. [Suspect]
     Active Substance: ATEZOLIZUMAB
     Indication: OVARIAN CANCER
     Dosage: 1200 MG, Q3WEEKS
     Route: 042
     Dates: start: 20190513
  3. XL184 [Suspect]
     Active Substance: CABOZANTINIB
     Indication: OVARIAN CANCER
     Dosage: 40 MG, QD
     Route: 048
     Dates: start: 20190513, end: 20190529
  4. XARELTO [Concomitant]
     Active Substance: RIVAROXABAN
  5. ASPIRIN. [Concomitant]
     Active Substance: ASPIRIN
  6. TRAMADOL + ACETAMINOFEN [Concomitant]
     Active Substance: ACETAMINOPHEN\TRAMADOL

REACTIONS (3)
  - Pyrexia [Recovered/Resolved]
  - Fatigue [Recovered/Resolved]
  - Metabolic encephalopathy [Recovered/Resolved]

NARRATIVE: CASE EVENT DATE: 20190526
